FAERS Safety Report 19499807 (Version 2)
Quarter: 2021Q3

REPORT INFORMATION
  Report Type: Spontaneous
  Country: KW (occurrence: KW)
  Receive Date: 20210706
  Receipt Date: 20210913
  Transmission Date: 20211014
  Serious: Yes (Other)
  Sender: FDA-Public Use
  Company Number: NVSC2021KW150413

PATIENT
  Sex: Male

DRUGS (5)
  1. DEXAMETHASONE. [Suspect]
     Active Substance: DEXAMETHASONE
     Indication: FOETAL EXPOSURE DURING PREGNANCY
     Dosage: MATERNAL DOSE: UNK (ANTE?NATAL COMPLETE COURSE)
     Route: 064
  2. NITRIC OXIDE. [Concomitant]
     Active Substance: NITRIC OXIDE
     Indication: PULMONARY HYPERTENSION
     Dosage: UNK (CONTINUED TILL DAY 40 OF LIFE)
     Route: 055
  3. IBUPROFEN. [Concomitant]
     Active Substance: IBUPROFEN
     Indication: PATENT DUCTUS ARTERIOSUS
     Dosage: UNK
     Route: 065
  4. SILDENAFIL. [Concomitant]
     Active Substance: SILDENAFIL
     Indication: PULMONARY HYPERTENSION
     Dosage: UNK (CONTINUED TILL DAY 128 OF LIFE)
     Route: 065
  5. MEROPENEM. [Concomitant]
     Active Substance: MEROPENEM
     Indication: BACTERIAL SEPSIS
     Dosage: UNK
     Route: 065

REACTIONS (3)
  - Neonatal respiratory distress [Recovered/Resolved]
  - Foetal exposure during pregnancy [Unknown]
  - Premature baby [Unknown]
